FAERS Safety Report 12511338 (Version 1)
Quarter: 2016Q2

REPORT INFORMATION
  Report Type: Other
  Country: None (occurrence: US)
  Receive Date: 20160629
  Receipt Date: 20160629
  Transmission Date: 20160815
  Serious: Yes (Hospitalization)
  Sender: FDA-Public Use
  Company Number: US-FRI-1000085769

PATIENT
  Age: 19 Year
  Sex: Male

DRUGS (5)
  1. LITHIUM. [Suspect]
     Active Substance: LITHIUM
     Indication: PSYCHOTIC BEHAVIOUR
  2. RISPERIDONE. [Suspect]
     Active Substance: RISPERIDONE
     Indication: PSYCHOTIC BEHAVIOUR
  3. ASENAPINE [Suspect]
     Active Substance: ASENAPINE
     Indication: PSYCHOTIC BEHAVIOUR
  4. OLANZAPINE. [Suspect]
     Active Substance: OLANZAPINE
     Indication: PSYCHOTIC BEHAVIOUR
  5. ZIPRASIDONE. [Suspect]
     Active Substance: ZIPRASIDONE
     Indication: PSYCHOTIC BEHAVIOUR

REACTIONS (4)
  - Hallucination [Recovered/Resolved]
  - Physical assault [Recovered/Resolved]
  - Febrile neutropenia [Recovered/Resolved]
  - Delusion [Recovered/Resolved]
